FAERS Safety Report 17115908 (Version 1)
Quarter: 2019Q4

REPORT INFORMATION
  Report Type: Spontaneous
  Country: US (occurrence: US)
  Receive Date: 20191205
  Receipt Date: 20191205
  Transmission Date: 20200122
  Serious: No
  Sender: FDA-Public Use
  Company Number: US-PFIZER INC-2019523270

PATIENT
  Age: 85 Year
  Sex: Male

DRUGS (1)
  1. VYNDAQEL [Suspect]
     Active Substance: TAFAMIDIS MEGLUMINE
     Indication: AMYLOIDOSIS
     Dosage: 80 MG, 1X/DAY (20MG CAPSULES, 4 AT A TIME TO EQUAL 80MG, ONCE DAILY, BY MOUTH)
     Route: 048

REACTIONS (3)
  - Body height decreased [Unknown]
  - Off label use [Unknown]
  - Product use in unapproved indication [Unknown]
